FAERS Safety Report 9529777 (Version 1)
Quarter: 2013Q1

REPORT INFORMATION
  Report Type: Spontaneous
  Country: US (occurrence: None)
  Receive Date: 20130329
  Receipt Date: 20130329
  Transmission Date: 20140127
  Serious: No
  Sender: FDA-Public Use
  Company Number: 1000042194

PATIENT
  Age: 73 Year
  Sex: Female

DRUGS (4)
  1. LINZESS [Suspect]
     Indication: CONSTIPATION
     Route: 048
     Dates: start: 20130118
  2. WELLBUTRIN (BUPROPION HYDROCHLORIDE) [Concomitant]
  3. SIMVASTATIN [Concomitant]
  4. PAXIL (PAROXETINE HYDROCHLORIDE) [Concomitant]

REACTIONS (1)
  - Abdominal pain upper [None]
